FAERS Safety Report 25099250 (Version 1)
Quarter: 2025Q1

REPORT INFORMATION
  Report Type: Report from Study
  Country: US (occurrence: US)
  Receive Date: 20250320
  Receipt Date: 20250320
  Transmission Date: 20250408
  Serious: Yes (Other)
  Sender: GILEAD
  Company Number: US-GILEAD-2025-0701471

PATIENT
  Age: 6 Year
  Sex: Male

DRUGS (13)
  1. AZTREONAM LYSINE [Suspect]
     Active Substance: AZTREONAM LYSINE
     Indication: Bacterial disease carrier
     Dosage: 75MG, INHALE 1 ML (75 MG TOTAL) VIA NEBULIZER THREE TIMES DAILY FOR 28 DAYS ON AND 28 DAYS OFF
     Route: 055
     Dates: start: 20221208
  2. BUDESONIDE [Concomitant]
     Active Substance: BUDESONIDE
  3. SULFAMETHOXAZOLE\TRIMETHOPRIM [Concomitant]
     Active Substance: SULFAMETHOXAZOLE\TRIMETHOPRIM
  4. IPRATROPIUM [Concomitant]
     Active Substance: IPRATROPIUM
  5. DIURIL [CHLOROTHIAZIDE] [Concomitant]
  6. SPIRONOLACTONE [Concomitant]
     Active Substance: SPIRONOLACTONE
  7. LANSOPRAZOLE [Concomitant]
     Active Substance: LANSOPRAZOLE
  8. ENALAPRIL [Concomitant]
     Active Substance: ENALAPRIL
  9. TOBRAMYCIN [Concomitant]
     Active Substance: TOBRAMYCIN
  10. FLUTICASONE PROPIONATE HFA [Concomitant]
     Active Substance: FLUTICASONE PROPIONATE
  11. SODIUM CHLORIDE [Concomitant]
     Active Substance: SODIUM CHLORIDE
  12. ACETAMINOPHEN\ASCORBIC ACID [Concomitant]
     Active Substance: ACETAMINOPHEN\ASCORBIC ACID
  13. ALBUTEROL SULFATE [Concomitant]
     Active Substance: ALBUTEROL SULFATE

REACTIONS (2)
  - Cardiac operation [Unknown]
  - Product use in unapproved indication [Not Recovered/Not Resolved]
